FAERS Safety Report 7953970-9 (Version None)
Quarter: 2011Q4

REPORT INFORMATION
  Report Type: 
  Country: None (occurrence: None)
  Receive Date: 20111202
  Receipt Date: 20111202
  Transmission Date: 20120403
  Serious: No
  Sender: FDA-Public Use
  Company Number: None

PATIENT
  Age: 24 Year
  Sex: Female
  Weight: 94.8 kg

DRUGS (1)
  1. LEVONORGESTREL AND ETHINYL ESTRADIOL [Suspect]
     Indication: CONTRACEPTION
     Dosage: ONE PILL
     Route: 048
     Dates: start: 20111010, end: 20111201

REACTIONS (3)
  - MENORRHAGIA [None]
  - HYPERSENSITIVITY [None]
  - BLOOD IRON DECREASED [None]
